FAERS Safety Report 5669567-X (Version None)
Quarter: 2008Q1

REPORT INFORMATION
  Report Type: 
  Country: None (occurrence: None)
  Receive Date: 20080312
  Receipt Date: 20080312
  Transmission Date: 20080703
  Serious: Yes (Other)
  Sender: FDA-Public Use
  Company Number: None

PATIENT
  Age: 16 Year
  Sex: Male
  Weight: 90.2 kg

DRUGS (7)
  1. VANCOMYCIN [Suspect]
     Indication: CELLULITIS
     Dosage: 500MG Q6 IV
     Route: 042
     Dates: start: 20080205
  2. VANCOMYCIN [Suspect]
     Dosage: 1100MG Q12 IV
     Route: 042
     Dates: start: 20080206, end: 20080212
  3. ARIPIPRAZOLE [Concomitant]
  4. ATOMOXETINE HCL [Concomitant]
  5. CLINDAMYCIN HCL [Concomitant]
  6. CEFOTAXINE [Concomitant]
  7. BACTRIM [Concomitant]

REACTIONS (5)
  - DERMATITIS EXFOLIATIVE [None]
  - HYPOALBUMINAEMIA [None]
  - PYREXIA [None]
  - RASH [None]
  - TRANSAMINASES INCREASED [None]
